FAERS Safety Report 10925070 (Version 2)
Quarter: 2015Q2

REPORT INFORMATION
  Report Type: Spontaneous
  Country: US (occurrence: US)
  Receive Date: 20150318
  Receipt Date: 20150524
  Transmission Date: 20150821
  Serious: No
  Sender: FDA-Public Use
  Company Number: US-JNJFOC-20140312012

PATIENT
  Age: 83 Year
  Sex: Female
  Weight: 68.04 kg

DRUGS (2)
  1. LIPITOR [Concomitant]
     Active Substance: ATORVASTATIN CALCIUM
     Indication: BLOOD CHOLESTEROL
     Route: 048
  2. NIZORAL [Suspect]
     Active Substance: KETOCONAZOLE
     Indication: RASH
     Route: 061
     Dates: start: 20140313, end: 20140313

REACTIONS (8)
  - Treatment noncompliance [Unknown]
  - Feeling hot [Not Recovered/Not Resolved]
  - Ear swelling [Not Recovered/Not Resolved]
  - Erythema [Not Recovered/Not Resolved]
  - Erythema [Not Recovered/Not Resolved]
  - Nasal discomfort [Not Recovered/Not Resolved]
  - Ear pain [Not Recovered/Not Resolved]
  - Nasal oedema [Not Recovered/Not Resolved]

NARRATIVE: CASE EVENT DATE: 201403
